FAERS Safety Report 6011201-3 (Version None)
Quarter: 2008Q4

REPORT INFORMATION
  Report Type: 
  Country: None (occurrence: None)
  Receive Date: 20081218
  Receipt Date: 20081215
  Transmission Date: 20090506
  Serious: Yes (Hospitalization)
  Sender: FDA-Public Use
  Company Number: JP-ABBOTT-08P-087-0493122-00

PATIENT
  Age: 65 Year
  Sex: Female
  Weight: 40.6 kg

DRUGS (14)
  1. CLARITH TABLETS [Suspect]
     Indication: OTITIS MEDIA ACUTE
     Route: 048
     Dates: start: 20070521, end: 20070523
  2. UNKNOWN MEDICATION [Suspect]
     Indication: DRUG USE FOR UNKNOWN INDICATION
  3. UNKNOWN MEDICATION [Suspect]
  4. AMLODIPINE [Concomitant]
     Indication: HYPERTENSION
     Route: 048
     Dates: start: 20011202
  5. METHIMAZOLE [Concomitant]
     Indication: HYPERTHYROIDISM
     Route: 048
     Dates: start: 20030715
  6. BENZBROMARONE [Concomitant]
     Indication: HYPERURICAEMIA
     Route: 048
     Dates: start: 20070205, end: 20070528
  7. MERCKMEZIN [Concomitant]
     Indication: RENAL FAILURE CHRONIC
     Route: 048
     Dates: start: 20070205
  8. AMOXICILLIN [Concomitant]
     Indication: OTITIS MEDIA ACUTE
     Route: 048
     Dates: start: 20070515, end: 20070520
  9. CARBOCISTEINE [Concomitant]
     Indication: OTITIS MEDIA ACUTE
     Route: 048
     Dates: start: 20070515, end: 20070523
  10. OFLOXACIN [Concomitant]
     Indication: OTITIS MEDIA ACUTE
     Dosage: EDR; 2-3 GUTTA, TWICE DAILY
     Route: 061
     Dates: start: 20070515, end: 20070520
  11. REBAMIPIDE [Concomitant]
     Indication: OTITIS MEDIA ACUTE
     Route: 048
     Dates: start: 20070518, end: 20070523
  12. ADENOSINE TRIPHOSPHATE, DISODIUM SALT [Concomitant]
     Indication: OTITIS MEDIA ACUTE
     Route: 048
     Dates: start: 20070518, end: 20070523
  13. CYANOCOBALAMIN [Concomitant]
     Indication: OTITIS MEDIA ACUTE
     Route: 048
     Dates: start: 20070518, end: 20070523
  14. PREDNISOLONE SODIUM PHOSPHATE [Concomitant]
     Indication: OTITIS MEDIA ACUTE
     Route: 048
     Dates: start: 20070518, end: 20070523

REACTIONS (5)
  - ERYTHEMA MULTIFORME [None]
  - FACE OEDEMA [None]
  - GAIT DISTURBANCE [None]
  - HYPOPHAGIA [None]
  - NAUSEA [None]
